FAERS Safety Report 8913687 (Version 1)
Quarter: 2012Q4

REPORT INFORMATION
  Report Type: 
  Country: US (occurrence: US)
  Receive Date: 20121116
  Receipt Date: 20121116
  Transmission Date: 20130627
  Serious: Yes (Hospitalization)
  Sender: FDA-Public Use
  Company Number: US-BIOGENIDEC-2012BI052963

PATIENT
  Sex: Female

DRUGS (3)
  1. TYSABRI [Suspect]
     Indication: MULTIPLE SCLEROSIS
     Route: 042
     Dates: start: 20120912
  2. IV STEROIDS(NOS) [Concomitant]
     Indication: MULTIPLE SCLEROSIS
  3. TYLENOL [Concomitant]
     Indication: BACK PAIN

REACTIONS (1)
  - Vertigo [Recovered/Resolved]
